FAERS Safety Report 9916854 (Version 1)
Quarter: 2014Q1

REPORT INFORMATION
  Report Type: Spontaneous
  Country: US (occurrence: US)
  Receive Date: 20140221
  Receipt Date: 20140221
  Transmission Date: 20141002
  Serious: No
  Sender: FDA-Public Use
  Company Number: US-MYLANLABS-2013S1008750

PATIENT
  Age: 60 Year
  Sex: Female

DRUGS (3)
  1. HYDROCHLOROTHIAZIDE CAPSULES [Suspect]
     Indication: BLOOD PRESSURE INCREASED
     Route: 048
     Dates: start: 20130405, end: 20130411
  2. AMLODIPINE BESYLATE TABLETS [Suspect]
     Indication: BLOOD PRESSURE INCREASED
     Dates: start: 201304
  3. VITAMINS [Concomitant]

REACTIONS (1)
  - Myopia [Not Recovered/Not Resolved]
